FAERS Safety Report 6127926-5 (Version None)
Quarter: 2009Q1

REPORT INFORMATION
  Report Type: 
  Country: None (occurrence: None)
  Receive Date: 20090323
  Receipt Date: 20090312
  Transmission Date: 20090719
  Serious: Yes (Hospitalization)
  Sender: FDA-Public Use
  Company Number: CH-ASTRAZENECA-2009PK00859

PATIENT
  Age: 13 Year
  Sex: Female
  Weight: 50 kg

DRUGS (5)
  1. SEROQUEL [Suspect]
     Indication: SCHIZOAFFECTIVE DISORDER
     Route: 048
     Dates: start: 20080922, end: 20080925
  2. SEROQUEL [Suspect]
     Route: 048
     Dates: start: 20080926, end: 20080928
  3. SEROQUEL [Suspect]
     Route: 048
     Dates: start: 20080929, end: 20081005
  4. SEROQUEL [Suspect]
     Route: 048
     Dates: start: 20081006, end: 20081111
  5. SEROQUEL [Suspect]
     Route: 048
     Dates: start: 20081112, end: 20090209

REACTIONS (2)
  - LEUKOPENIA [None]
  - NEUTROPENIA [None]
